FAERS Safety Report 9109212 (Version 2)
Quarter: 2013Q1

REPORT INFORMATION
  Report Type: Report from Study
  Country: CA (occurrence: CA)
  Receive Date: 20130222
  Receipt Date: 20130225
  Transmission Date: 20140127
  Serious: Yes (Death)
  Sender: FDA-Public Use
  Company Number: PHHY2013CA017326

PATIENT
  Sex: Female
  Weight: 73.6 kg

DRUGS (18)
  1. CLOZARIL [Suspect]
     Dosage: 125 MG, UNK
     Route: 048
     Dates: start: 20120117
  2. CLOZARIL [Suspect]
     Dosage: 100 MG, UNK
     Route: 048
     Dates: start: 20120214
  3. CLOZARIL [Suspect]
     Dosage: 25 MG, UNK
     Route: 048
     Dates: start: 20120406
  4. TYLENOL [Concomitant]
     Dosage: 650 MG, TID
     Route: 048
     Dates: start: 20120322
  5. GLAXAL BASE [Concomitant]
     Dosage: UNK UKN, BID
     Dates: start: 20120120
  6. NIZORAL [Concomitant]
     Dosage: UNK UKN, UNK
     Dates: start: 20110928
  7. ATIVAN [Concomitant]
     Dosage: 1 MG, TID
     Route: 048
     Dates: start: 20110924
  8. NAPROSYN [Concomitant]
     Dosage: 500 MG, BID
     Dates: start: 20110924
  9. PANTOLOC ^BYK MADAUS^ [Concomitant]
     Dosage: 40 MG, QD
     Route: 048
     Dates: start: 20110924
  10. DILANTIN                                /CAN/ [Concomitant]
     Dosage: 300 MG, UNK
     Route: 048
     Dates: start: 20110518
  11. DILANTIN                                /CAN/ [Concomitant]
     Dosage: 25 MG, QD
     Route: 048
     Dates: start: 20120921
  12. NACL [Concomitant]
     Dosage: UNK UKN, UNK
     Dates: start: 20111228
  13. STELAZINE [Concomitant]
     Dosage: 20 MG, UNK
     Route: 048
     Dates: start: 20120303
  14. CELESTODERM [Concomitant]
     Dosage: UNK UKN, UNK
     Dates: start: 20110924
  15. COLACE [Concomitant]
     Dosage: 100 MG, UNK
     Route: 048
     Dates: start: 20120514
  16. DALMANE [Concomitant]
     Dosage: 30 MG, UNK
     Route: 048
     Dates: start: 20110924
  17. LARMES ARTIFICIELLES [Concomitant]
     Dosage: UNK UKN, UNK
     Dates: start: 20111229
  18. DEEP COLD THERAPY [Concomitant]
     Dosage: UNK UKN, UNK
     Dates: start: 20121006

REACTIONS (2)
  - Cardio-respiratory arrest [Fatal]
  - Choking [Fatal]
